FAERS Safety Report 24987266 (Version 2)
Quarter: 2025Q4

REPORT INFORMATION
  Report Type: Report from Study
  Country: US (occurrence: US)
  Receive Date: 20250219
  Receipt Date: 20251126
  Transmission Date: 20260117
  Serious: Yes (Other)
  Sender: ABBVIE
  Company Number: US-ABBVIE-6138693

PATIENT
  Age: 46 Year
  Sex: Female

DRUGS (2)
  1. QULIPTA [Suspect]
     Active Substance: ATOGEPANT
     Indication: Product used for unknown indication
     Dosage: LAST ADMINISTRATION: 2023
     Route: 048
     Dates: start: 20230201
  2. QULIPTA [Suspect]
     Active Substance: ATOGEPANT
     Indication: Product used for unknown indication
     Route: 048
     Dates: start: 20230701

REACTIONS (4)
  - Meningitis [Unknown]
  - Illness [Unknown]
  - Memory impairment [Unknown]
  - Brain operation [Unknown]

NARRATIVE: CASE EVENT DATE: 20230101
